FAERS Safety Report 18638652 (Version 1)
Quarter: 2020Q4

REPORT INFORMATION
  Report Type: Spontaneous
  Country: US (occurrence: US)
  Receive Date: 20201218
  Receipt Date: 20201218
  Transmission Date: 20210114
  Serious: No
  Sender: FDA-Public Use
  Company Number: US-REGENERON PHARMACEUTICALS, INC.-2020-90694

PATIENT

DRUGS (8)
  1. EYLEA [Suspect]
     Active Substance: AFLIBERCEPT
     Dosage: 1 MG, MONTHLY
     Route: 031
     Dates: start: 20180620, end: 20180620
  2. EYLEA [Suspect]
     Active Substance: AFLIBERCEPT
     Dosage: 1 MG, MONTHLY
     Route: 031
     Dates: start: 20180817, end: 20180817
  3. EYLEA [Suspect]
     Active Substance: AFLIBERCEPT
     Dosage: 1 MG, MONTHLY
     Route: 031
     Dates: start: 20181026, end: 20181026
  4. EYLEA [Suspect]
     Active Substance: AFLIBERCEPT
     Indication: NEOVASCULAR AGE-RELATED MACULAR DEGENERATION
     Dosage: 1 MG, MONTHLY, RIGHT EYE
     Route: 031
     Dates: start: 20180502
  5. EYLEA [Suspect]
     Active Substance: AFLIBERCEPT
     Dosage: 1 MG, MONTHLY, LEFT EYE
     Route: 031
  6. EYLEA [Suspect]
     Active Substance: AFLIBERCEPT
     Dosage: 1 MG, BOTH EYES, EVERY 3 MONTHS
     Route: 031
     Dates: start: 20200902, end: 20200902
  7. EYLEA [Suspect]
     Active Substance: AFLIBERCEPT
     Dosage: 1 MG, MONTHLY
     Route: 031
     Dates: start: 20180711, end: 20180711
  8. EYLEA [Suspect]
     Active Substance: AFLIBERCEPT
     Dosage: 1 MG, MONTHLY
     Route: 031
     Dates: start: 20181116, end: 20181116

REACTIONS (2)
  - Underdose [Unknown]
  - Vitreous floaters [Unknown]

NARRATIVE: CASE EVENT DATE: 2019
